FAERS Safety Report 8766139 (Version 2)
Quarter: 2013Q1

REPORT INFORMATION
  Report Type: Report from Study
  Country: JP (occurrence: JP)
  Receive Date: 20120904
  Receipt Date: 20130116
  Transmission Date: 20140127
  Serious: Yes (Other)
  Sender: FDA-Public Use
  Company Number: JP-009507513-1208JPN009718

PATIENT
  Age: 70 Year
  Sex: Female
  Weight: 54 kg

DRUGS (15)
  1. PEGINTRON [Suspect]
     Indication: CHRONIC HEPATITIS C
     Dosage: 80 MICROGRAM, QW
     Route: 058
     Dates: start: 20120620, end: 20120704
  2. PEGINTRON [Suspect]
     Dosage: 60 MICROGRAM, QW
     Route: 058
     Dates: start: 20120711, end: 20120711
  3. PEGINTRON [Suspect]
     Dosage: 80 MICROGRAM, QW
     Route: 058
     Dates: start: 20120718
  4. REBETOL [Suspect]
     Indication: CHRONIC HEPATITIS C
     Dosage: 600 MG, QD
     Route: 048
     Dates: start: 20120620, end: 20120717
  5. REBETOL [Suspect]
     Dosage: 400 MG, QD
     Route: 048
     Dates: start: 20120718
  6. TELAVIC [Suspect]
     Indication: CHRONIC HEPATITIS C
     Dosage: 1500 MG, QD
     Route: 048
     Dates: start: 20120620, end: 20120724
  7. TELAVIC [Suspect]
     Dosage: 1000 MG, QD
     Route: 048
     Dates: start: 20120725, end: 20120731
  8. TELAVIC [Suspect]
     Dosage: 750 MG, QD
     Route: 048
     Dates: start: 20120801
  9. ALLEGRA [Concomitant]
     Indication: PROPHYLAXIS
     Dosage: 120 MG, QD
     Route: 048
     Dates: start: 20120621
  10. RIKKUNSHI-TO [Concomitant]
     Indication: PROPHYLAXIS
     Dosage: 7.5 G, QD
     Route: 048
     Dates: start: 20120620, end: 20120625
  11. PRIMPERAN [Concomitant]
     Indication: NAUSEA
     Dosage: 1 TAB/ DAY, AS NEEDED
     Route: 048
     Dates: start: 20120621, end: 20120624
  12. PRIMPERAN [Concomitant]
     Dosage: 3 DF
     Route: 048
     Dates: start: 20120625
  13. FEBURIC [Concomitant]
     Indication: HYPERURICAEMIA
     Dosage: 20 MG, QD
     Route: 048
  14. RESTAMIN KOWA (DIPHENHYDRAMINE HYDROCHLORIDE (+) ENOXOLONE (+) ZINC OX [Concomitant]
     Route: 061
  15. DERMOVATE [Concomitant]
     Indication: PRURITUS
     Dosage: Q.S/DAY
     Route: 061

REACTIONS (2)
  - Platelet count decreased [Not Recovered/Not Resolved]
  - Haemoglobin decreased [Not Recovered/Not Resolved]
